FAERS Safety Report 25066286 (Version 1)
Quarter: 2025Q1

REPORT INFORMATION
  Report Type: Spontaneous
  Country: GB (occurrence: GB)
  Receive Date: 20250312
  Receipt Date: 20250312
  Transmission Date: 20250408
  Serious: Yes (Other)
  Sender: ENDO
  Company Number: GB-ENDO USA, INC.-2025-000788

PATIENT
  Age: 59 Year
  Sex: Male

DRUGS (10)
  1. EDEX [Suspect]
     Active Substance: ALPROSTADIL
     Indication: Erectile dysfunction
     Route: 017
     Dates: start: 20250210, end: 202502
  2. EDEX [Suspect]
     Active Substance: ALPROSTADIL
     Indication: Erectile dysfunction
     Route: 017
     Dates: start: 20250210, end: 202502
  3. EDEX [Suspect]
     Active Substance: ALPROSTADIL
     Indication: Erectile dysfunction
     Route: 017
     Dates: start: 20250210, end: 202502
  4. EDEX [Suspect]
     Active Substance: ALPROSTADIL
     Indication: Erectile dysfunction
     Route: 017
     Dates: start: 20250210, end: 202502
  5. EDEX [Suspect]
     Active Substance: ALPROSTADIL
     Indication: Erectile dysfunction
     Route: 017
     Dates: start: 20250210, end: 202502
  6. EDEX [Suspect]
     Active Substance: ALPROSTADIL
     Route: 017
     Dates: start: 202502, end: 20250224
  7. EDEX [Suspect]
     Active Substance: ALPROSTADIL
     Route: 017
     Dates: start: 202502, end: 20250224
  8. EDEX [Suspect]
     Active Substance: ALPROSTADIL
     Route: 017
     Dates: start: 202502, end: 20250224
  9. EDEX [Suspect]
     Active Substance: ALPROSTADIL
     Route: 017
     Dates: start: 202502, end: 20250224
  10. EDEX [Suspect]
     Active Substance: ALPROSTADIL
     Route: 017
     Dates: start: 202502, end: 20250224

REACTIONS (1)
  - Muscle spasms [Recovered/Resolved]

NARRATIVE: CASE EVENT DATE: 20250210
